FAERS Safety Report 10456662 (Version 2)
Quarter: 2014Q4

REPORT INFORMATION
  Report Type: Spontaneous
  Country: US (occurrence: US)
  Receive Date: 20140916
  Receipt Date: 20141212
  Transmission Date: 20150528
  Serious: No
  Sender: FDA-Public Use
  Company Number: US-ASTRAZENECA-2014SE66823

PATIENT
  Age: 25019 Day
  Sex: Female
  Weight: 80.4 kg

DRUGS (31)
  1. TOPROL XL [Suspect]
     Active Substance: METOPROLOL SUCCINATE
     Indication: HEART RATE INCREASED
     Dosage: GENERIC
     Route: 065
  2. TOPROL XL [Suspect]
     Active Substance: METOPROLOL SUCCINATE
     Indication: BLOOD PRESSURE ABNORMAL
     Dosage: GENERIC
     Route: 065
  3. GABAPENTIN. [Concomitant]
     Active Substance: GABAPENTIN
     Indication: NEUROPATHY PERIPHERAL
     Dosage: 2 CAPS AT NIGHT
     Route: 048
  4. PRENDNISONE [Concomitant]
     Indication: ARTHRITIS
     Dosage: 5 MG TAPERED DOWN TO 2 MG
     Route: 048
  5. CENTRUM SILVER [Concomitant]
     Active Substance: VITAMINS
     Indication: GENERAL PHYSICAL HEALTH DETERIORATION
     Dosage: ONE VITAMIN DAILY
     Route: 048
  6. TRAZODONE [Concomitant]
     Active Substance: TRAZODONE HYDROCHLORIDE
  7. TOPROL XL [Suspect]
     Active Substance: METOPROLOL SUCCINATE
     Indication: BLOOD PRESSURE ABNORMAL
     Route: 048
     Dates: end: 2006
  8. PRENDNISONE [Concomitant]
     Indication: ARTHRITIS
     Dosage: 5 MG
     Route: 048
     Dates: end: 2013
  9. VAGIFEM [Concomitant]
     Active Substance: ESTRADIOL
     Indication: MENOPAUSE
     Dosage: 10 MCG ONE TAB
     Route: 048
  10. V CILLIN K [Concomitant]
  11. FLEXERIL [Concomitant]
     Active Substance: CYCLOBENZAPRINE HYDROCHLORIDE
  12. PANTOPRAZOLE [Concomitant]
     Active Substance: PANTOPRAZOLE SODIUM
     Indication: OESOPHAGEAL PAIN
     Route: 048
     Dates: start: 1994
  13. RHINOCORT AQUA [Suspect]
     Active Substance: BUDESONIDE
     Indication: NASAL CONGESTION
     Dosage: 32 MCG, 1 TO 2 SPRAYS NOSTRIL, AS REQUIRED
     Route: 045
  14. HYOSCYAMINE [Concomitant]
     Active Substance: HYOSCYAMINE
     Indication: IRRITABLE BOWEL SYNDROME
     Dosage: 0.125 MG 1 TO 2 TABS, UP TO 4 TIMES DAILY AS REQUIRED
     Route: 048
  15. VAGIFEM [Concomitant]
     Active Substance: ESTRADIOL
     Indication: MENOPAUSE
     Dosage: ONCE A WEEK
     Route: 048
  16. CALTRATE AND VITAMIN D 3 [Concomitant]
     Indication: OSTEOPENIA
     Dosage: SUPPLEMENT GUMMI BITS, DAILY
     Route: 048
  17. KEFLEX [Concomitant]
     Active Substance: CEPHALEXIN
  18. STATINS [Concomitant]
     Active Substance: UNSPECIFIED INGREDIENT
  19. RHINOCORT AQUA [Suspect]
     Active Substance: BUDESONIDE
     Indication: NASAL DISCOMFORT
     Dosage: 32 MCG, 1 TO 2 SPRAYS NOSTRIL, AS REQUIRED
     Route: 045
  20. TOPROL XL [Suspect]
     Active Substance: METOPROLOL SUCCINATE
     Indication: HEART RATE INCREASED
     Route: 048
     Dates: end: 2006
  21. TOPROL XL [Suspect]
     Active Substance: METOPROLOL SUCCINATE
     Indication: HEART RATE INCREASED
     Route: 048
     Dates: start: 2006
  22. TOPROL XL [Suspect]
     Active Substance: METOPROLOL SUCCINATE
     Indication: BLOOD PRESSURE ABNORMAL
     Route: 048
     Dates: start: 2006
  23. PANTOPRAZOLE [Concomitant]
     Active Substance: PANTOPRAZOLE SODIUM
     Indication: GASTROOESOPHAGEAL REFLUX DISEASE
     Route: 048
     Dates: start: 1994
  24. RANITIDINE [Concomitant]
     Active Substance: RANITIDINE\RANITIDINE HYDROCHLORIDE
     Indication: GASTROOESOPHAGEAL REFLUX DISEASE
     Route: 048
     Dates: start: 20140411
  25. VAGIFEM [Concomitant]
     Active Substance: ESTRADIOL
     Indication: MENOPAUSE
     Dosage: TWICE
     Route: 048
  26. VITAMIN D [Concomitant]
     Active Substance: CHOLECALCIFEROL
     Indication: VITAMIN D DEFICIENCY
     Route: 048
     Dates: start: 201310
  27. MACROBID [Concomitant]
     Active Substance: NITROFURANTOIN\NITROFURANTOIN MONOHYDRATE
  28. PLAQUENIL [Concomitant]
     Active Substance: HYDROXYCHLOROQUINE SULFATE
  29. CELEBREX [Concomitant]
     Active Substance: CELECOXIB
  30. RHINOCORT AQUA [Suspect]
     Active Substance: BUDESONIDE
     Indication: RESPIRATORY TRACT INFECTION
     Dosage: 32 MCG, 1 TO 2 SPRAYS NOSTRIL, AS REQUIRED
     Route: 045
  31. DARVOCET [Concomitant]
     Active Substance: ACETAMINOPHEN\PROPOXYPHENE HYDROCHLORIDE

REACTIONS (12)
  - Dyspnoea [Not Recovered/Not Resolved]
  - Adverse drug reaction [Not Recovered/Not Resolved]
  - Gastrooesophageal reflux disease [Not Recovered/Not Resolved]
  - Costochondritis [Unknown]
  - Adverse event [Not Recovered/Not Resolved]
  - Heart rate decreased [Not Recovered/Not Resolved]
  - Discomfort [Not Recovered/Not Resolved]
  - Chest pain [Not Recovered/Not Resolved]
  - Chest discomfort [Unknown]
  - Fatigue [Not Recovered/Not Resolved]
  - Off label use [Not Recovered/Not Resolved]
  - Rheumatic disorder [Unknown]

NARRATIVE: CASE EVENT DATE: 20140412
